FAERS Safety Report 6910233-8 (Version None)
Quarter: 2010Q3

REPORT INFORMATION
  Report Type: 
  Country: None (occurrence: None)
  Receive Date: 20100806
  Receipt Date: 20100706
  Transmission Date: 20110219
  Serious: No
  Sender: FDA-Public Use
  Company Number: US-BAYER-201017950BCC

PATIENT
  Age: 76 Year
  Sex: Female
  Weight: 59 kg

DRUGS (11)
  1. ALEVE (CAPLET) [Suspect]
     Indication: ARTHRALGIA
     Dosage: AS USED: 220 MG  UNIT DOSE: 220 MG
     Route: 048
  2. LIPITOR [Concomitant]
  3. SPIRONOLACTONE [Concomitant]
  4. HYDROCHLORZIDE [Concomitant]
  5. CVS ASPIRIN [Concomitant]
  6. VITAMIN D [Concomitant]
  7. BIOTIN [Concomitant]
  8. FLAX SEED OIL [Concomitant]
  9. CAPS EYE VITAMIN [Concomitant]
  10. OSCAL [Concomitant]
  11. CVS MULTIVITAMIN [Concomitant]

REACTIONS (1)
  - ABDOMINAL DISCOMFORT [None]
